FAERS Safety Report 25844619 (Version 1)
Quarter: 2025Q3

REPORT INFORMATION
  Report Type: Spontaneous
  Country: PK (occurrence: PK)
  Receive Date: 20250925
  Receipt Date: 20250925
  Transmission Date: 20251021
  Serious: Yes (Hospitalization)
  Sender: PRINSTON PHARMACEUTICAL
  Company Number: PK-PRINSTON PHARMACEUTICAL INC.-2025PRN00313

PATIENT
  Age: 69 Year
  Sex: Male

DRUGS (4)
  1. ROPINIROLE [Suspect]
     Active Substance: ROPINIROLE
     Indication: Parkinson^s disease
     Dosage: 0.25 MG, 1X/DAY
  2. ROPINIROLE [Suspect]
     Active Substance: ROPINIROLE
     Dosage: 6 MG, 1X/DAY
  3. AMANTADINE [Concomitant]
     Active Substance: AMANTADINE
  4. RASAGILINE [Concomitant]
     Active Substance: RASAGILINE

REACTIONS (1)
  - Jealous delusion [Recovering/Resolving]
